FAERS Safety Report 16747066 (Version 2)
Quarter: 2019Q4

REPORT INFORMATION
  Report Type: Spontaneous
  Country: US (occurrence: US)
  Receive Date: 20190827
  Receipt Date: 20191029
  Transmission Date: 20200122
  Serious: Yes (Other)
  Sender: FDA-Public Use
  Company Number: US-ALLERGAN-1934055US

PATIENT
  Sex: Female
  Weight: 95.25 kg

DRUGS (5)
  1. LYRICA [Suspect]
     Active Substance: PREGABALIN
     Indication: FIBROMYALGIA
     Dosage: 100 MG, BID
     Route: 048
  2. MUSCLE RELAXANTS [Concomitant]
     Active Substance: UNSPECIFIED INGREDIENT
  3. INFLUENZA VACCINE [Concomitant]
     Active Substance: INFLUENZA VIRUS VACCINE
     Indication: IMMUNISATION
     Dosage: UNK
     Dates: start: 20191008, end: 20191008
  4. CITALOPRAM HYDROBROMIDE UNK [Suspect]
     Active Substance: CITALOPRAM HYDROBROMIDE
     Dosage: 40 MG, QD
     Dates: end: 2017
  5. CITALOPRAM HYDROBROMIDE UNK [Suspect]
     Active Substance: CITALOPRAM HYDROBROMIDE
     Indication: PRODUCT USED FOR UNKNOWN INDICATION
     Dosage: 20 MG, QD
     Route: 048
     Dates: start: 2017

REACTIONS (15)
  - Memory impairment [Not Recovered/Not Resolved]
  - Musculoskeletal pain [Unknown]
  - Pain [Unknown]
  - Disease susceptibility [Unknown]
  - Dyspnoea [Unknown]
  - Back pain [Unknown]
  - Weight increased [Unknown]
  - Bronchitis [Unknown]
  - Chest pain [Recovering/Resolving]
  - Malaise [Not Recovered/Not Resolved]
  - Gastroenteritis viral [Unknown]
  - Labyrinthitis [Unknown]
  - Feeling abnormal [Not Recovered/Not Resolved]
  - Influenza [Unknown]
  - Heart rate decreased [Unknown]

NARRATIVE: CASE EVENT DATE: 2017
